FAERS Safety Report 4536827-5 (Version None)
Quarter: 2004Q4

REPORT INFORMATION
  Report Type: 
  Country: None (occurrence: None)
  Receive Date: 20041220
  Receipt Date: 20041213
  Transmission Date: 20050328
  Serious: Yes (Death, Hospitalization, Other)
  Sender: FDA-Public Use
  Company Number: 2004056775

PATIENT
  Age: 72 Year
  Sex: Male

DRUGS (1)
  1. TAHOR (ATORVASTATIN) [Suspect]
     Indication: ILL-DEFINED DISORDER
     Dosage: 40 MG (40 MG, 1 IN 1 D), ORAL
     Route: 048
     Dates: end: 20040529

REACTIONS (24)
  - ANAEMIA [None]
  - BENIGN COLONIC POLYP [None]
  - CHOLESTASIS [None]
  - COAGULATION FACTOR V LEVEL DECREASED [None]
  - CONSTIPATION [None]
  - CYANOSIS [None]
  - CYTOLYTIC HEPATITIS [None]
  - CYTOMEGALOVIRUS INFECTION [None]
  - DEPRESSED LEVEL OF CONSCIOUSNESS [None]
  - DIVERTICULUM DUODENAL [None]
  - DRUG INEFFECTIVE [None]
  - ESCHERICHIA INFECTION [None]
  - GASTRITIS [None]
  - GENERAL PHYSICAL HEALTH DETERIORATION [None]
  - HEPATIC ENCEPHALOPATHY [None]
  - HEPATIC FAILURE [None]
  - HEPATITIS FULMINANT [None]
  - HEPATOMEGALY [None]
  - HEPATORENAL SYNDROME [None]
  - HISTIOCYTOSIS HAEMATOPHAGIC [None]
  - NOSOCOMIAL INFECTION [None]
  - PNEUMONIA [None]
  - RENAL FAILURE [None]
  - SEPTIC SHOCK [None]
